FAERS Safety Report 5131487-7 (Version None)
Quarter: 2006Q4

REPORT INFORMATION
  Report Type: 
  Country: None (occurrence: None)
  Receive Date: 20061016
  Receipt Date: 20061003
  Transmission Date: 20070319
  Serious: Yes (Other)
  Sender: FDA-Public Use
  Company Number: 2006121618

PATIENT
  Age: 53 Year
  Sex: Female

DRUGS (3)
  1. DOXORUBICIN HCL [Suspect]
     Indication: OVARIAN CANCER
  2. ATORVASTATIN CALCIUM [Concomitant]
  3. DOMPERIDONE [Concomitant]

REACTIONS (1)
  - MYOCLONUS [None]
